FAERS Safety Report 5769529-8 (Version None)
Quarter: 2008Q2

REPORT INFORMATION
  Report Type: 
  Country: None (occurrence: None)
  Receive Date: 20080612
  Receipt Date: 20080402
  Transmission Date: 20081010
  Serious: No
  Sender: FDA-Public Use
  Company Number: US-ABBOTT-08P-163-0445072-00

PATIENT
  Sex: Female
  Weight: 77.18 kg

DRUGS (3)
  1. HUMIRA [Suspect]
     Indication: ANKYLOSING SPONDYLITIS
     Route: 058
     Dates: start: 20080314
  2. VICODIN [Concomitant]
     Indication: PAIN
     Dosage: 1 EVERY 6 HOURS
     Route: 048
  3. FOLIC ACID [Concomitant]
     Indication: FOLATE DEFICIENCY

REACTIONS (4)
  - FOLATE DEFICIENCY [None]
  - HEADACHE [None]
  - NAUSEA [None]
  - TONGUE DISORDER [None]
